FAERS Safety Report 15368822 (Version 1)
Quarter: 2018Q4

REPORT INFORMATION
  Report Type: Spontaneous
  Country: FR (occurrence: FR)
  Receive Date: 20180911
  Receipt Date: 20180911
  Transmission Date: 20190204
  Serious: Yes (Death, Other)
  Sender: FDA-Public Use
  Company Number: FR-AUROBINDO-AUR-APL-2018-043996

PATIENT
  Age: 77 Year
  Sex: Female
  Weight: 58 kg

DRUGS (1)
  1. HYDROXYZINE DIVISIBLE ARROW 25 MG FILM-COATED TABLET [Suspect]
     Active Substance: HYDROXYZINE HYDROCHLORIDE
     Indication: STRESS
     Dosage: 2 TABLETS (ONE AT NOON AND ONE AT NIGHT) ABOUT 6 HOURS APART
     Route: 048
     Dates: start: 20180504, end: 20180504

REACTIONS (2)
  - Cardiac failure [Fatal]
  - Respiratory failure [Fatal]

NARRATIVE: CASE EVENT DATE: 20180504
